FAERS Safety Report 14628460 (Version 3)
Quarter: 2019Q2

REPORT INFORMATION
  Report Type: Spontaneous
  Country: CA (occurrence: CA)
  Receive Date: 20180312
  Receipt Date: 20190603
  Transmission Date: 20190711
  Serious: Yes (Other)
  Sender: FDA-Public Use
  Company Number: CA-009507513-1803CAN004285

PATIENT
  Age: 71 Year
  Sex: Male
  Weight: 86.17 kg

DRUGS (2)
  1. NASONEX [Suspect]
     Active Substance: MOMETASONE FUROATE
     Indication: RHINITIS
     Dosage: 2 VAPORIZATIONS, DAILY(2 DOSAGE FORMS, 1 EVERY 1 DAY)
     Route: 065
     Dates: start: 201210, end: 20171102
  2. NASONEX [Suspect]
     Active Substance: MOMETASONE FUROATE
     Indication: NASAL CONGESTION
     Dosage: 4 DOSAGE FORM, 1 EVERY 1 DAY
     Route: 065

REACTIONS (3)
  - Lens disorder [Unknown]
  - Open angle glaucoma [Unknown]
  - Glaucoma [Not Recovered/Not Resolved]

NARRATIVE: CASE EVENT DATE: 20171102
